FAERS Safety Report 23083174 (Version 1)
Quarter: 2023Q4

REPORT INFORMATION
  Report Type: Spontaneous
  Country: US (occurrence: None)
  Receive Date: 20231017
  Receipt Date: 20231017
  Transmission Date: 20240110
  Serious: Yes (Hospitalization)
  Sender: FDA-Public Use
  Company Number: None

PATIENT
  Age: 80 Year
  Sex: Male

DRUGS (2)
  1. INSULIN GLARGINE-YFGN [Suspect]
     Active Substance: INSULIN GLARGINE-YFGN
     Dosage: OTHER STRENGTH : 100 UNITS/ML;?OTHER QUANTITY : 30 UNITS;?FREQUENCY : TWICE A DAY;?
     Route: 058
     Dates: start: 20221116
  2. VICTOZA [Suspect]
     Active Substance: LIRAGLUTIDE
     Dosage: FREQUENCY : DAILY;?
     Route: 058
     Dates: start: 20220617

REACTIONS (4)
  - Hypoglycaemia [None]
  - Wrong product administered [None]
  - Product colour issue [None]
  - Product appearance confusion [None]

NARRATIVE: CASE EVENT DATE: 20230206
